FAERS Safety Report 24135295 (Version 2)
Quarter: 2024Q3

REPORT INFORMATION
  Report Type: Spontaneous
  Country: US (occurrence: US)
  Receive Date: 20240725
  Receipt Date: 20240729
  Transmission Date: 20241016
  Serious: No
  Sender: JOHNSON AND JOHNSON
  Company Number: US-JNJFOC-20240762321

PATIENT
  Sex: Female

DRUGS (2)
  1. OPSUMIT [Suspect]
     Active Substance: MACITENTAN
     Indication: Product used for unknown indication
     Route: 048
     Dates: start: 20230301, end: 20230401
  2. REMODULIN [Concomitant]
     Active Substance: TREPROSTINIL
     Dates: start: 20230301, end: 20230401

REACTIONS (1)
  - Oedema [Unknown]
